FAERS Safety Report 6397251-6 (Version None)
Quarter: 2009Q4

REPORT INFORMATION
  Report Type: 
  Country: None (occurrence: None)
  Receive Date: 20091012
  Receipt Date: 20091008
  Transmission Date: 20100525
  Serious: Yes (Disabling)
  Sender: FDA-Public Use
  Company Number: US-MERCK-0910USA00430

PATIENT
  Age: 50 Year
  Sex: Male

DRUGS (5)
  1. ISENTRESS [Suspect]
     Indication: HIV INFECTION
     Route: 065
     Dates: start: 20090213
  2. RITONAVIR [Concomitant]
     Route: 065
  3. DARUNAVIR [Concomitant]
     Route: 065
  4. FTC [Concomitant]
     Route: 065
  5. ETRAVIRINE [Concomitant]
     Route: 065

REACTIONS (1)
  - NEPHROPATHY TOXIC [None]
